FAERS Safety Report 10196218 (Version 1)
Quarter: 2014Q2

REPORT INFORMATION
  Report Type: Spontaneous
  Country: GB (occurrence: None)
  Receive Date: 20140522
  Receipt Date: 20140522
  Transmission Date: 20141212
  Serious: Yes (Death)
  Sender: FDA-Public Use
  Company Number: GB-DEXPHARM-20140258

PATIENT
  Age: 41 Year
  Sex: Female

DRUGS (9)
  1. CODEINE [Suspect]
  2. MORPHINE [Suspect]
  3. PARACETAMOL [Suspect]
  4. PROPRANOLOL [Suspect]
  5. ALCOHOL [Suspect]
  6. CITALOPRAM [Concomitant]
  7. DIAZEPAM [Concomitant]
  8. NYTOL [Concomitant]
  9. OMEPRAZOLE [Concomitant]

REACTIONS (3)
  - Drug interaction [None]
  - Exposure via ingestion [None]
  - Drug level increased [None]
